FAERS Safety Report 7656216-4 (Version None)
Quarter: 2011Q3

REPORT INFORMATION
  Report Type: 
  Country: None (occurrence: None)
  Receive Date: 20110801
  Receipt Date: 20110725
  Transmission Date: 20111222
  Serious: Yes (Other)
  Sender: FDA-Public Use
  Company Number: FR-ACCORD-010077

PATIENT
  Age: 26 Year
  Sex: Male

DRUGS (2)
  1. DOCETAXEL [Suspect]
     Indication: SQUAMOUS CELL CARCINOMA
     Dosage: INTRAVENOUS (NOT OTHERWISE SPECIFIED)
     Route: 042
  2. FLUOROURACIL [Concomitant]

REACTIONS (4)
  - FROSTBITE [None]
  - ACTIVITIES OF DAILY LIVING IMPAIRED [None]
  - HAEMORRHAGE [None]
  - SKIN NECROSIS [None]
